FAERS Safety Report 4373669-8 (Version None)
Quarter: 2004Q1

REPORT INFORMATION
  Report Type: 
  Country: None (occurrence: None)
  Receive Date: 20040305
  Receipt Date: 20031121
  Transmission Date: 20041129
  Serious: Yes (Other)
  Sender: FDA-Public Use
  Company Number: 2003UW15515

PATIENT
  Age: 67 Year
  Sex: Female

DRUGS (6)
  1. CRESTOR [Suspect]
     Dosage: 10 MG PO
     Route: 048
  2. MONOPRIL [Concomitant]
  3. NADOLOL [Concomitant]
  4. SYNTHROID [Concomitant]
  5. ISOSORBIDE [Concomitant]
  6. DIURETIC [Concomitant]

REACTIONS (2)
  - ARTHRALGIA [None]
  - DRY MOUTH [None]
